FAERS Safety Report 6515888-8 (Version None)
Quarter: 2009Q4

REPORT INFORMATION
  Report Type: 
  Country: None (occurrence: None)
  Receive Date: 20091223
  Receipt Date: 20091216
  Transmission Date: 20100525
  Serious: Yes (Other)
  Sender: FDA-Public Use
  Company Number: CA-AMGEN-KDL324791

PATIENT
  Sex: Female
  Weight: 81.7 kg

DRUGS (1)
  1. ENBREL [Suspect]
     Indication: PSORIATIC ARTHROPATHY
     Route: 058
     Dates: start: 20080201, end: 20090101

REACTIONS (6)
  - BACK PAIN [None]
  - EYE INFLAMMATION [None]
  - IRITIS [None]
  - MUSCULOSKELETAL PAIN [None]
  - NECK PAIN [None]
  - ROAD TRAFFIC ACCIDENT [None]
